FAERS Safety Report 5564324-7 (Version None)
Quarter: 2007Q4

REPORT INFORMATION
  Report Type: 
  Country: None (occurrence: None)
  Receive Date: 20071218
  Receipt Date: 20071214
  Transmission Date: 20080405
  Serious: Yes (Life-Threatening, Hospitalization)
  Sender: FDA-Public Use
  Company Number: PHBS2007JP18524

PATIENT
  Age: 94 Year
  Sex: Female
  Weight: 43 kg

DRUGS (12)
  1. TEGRETOL [Suspect]
     Indication: INTERCOSTAL NEURALGIA
     Dosage: 200 MG, BID
     Route: 048
     Dates: start: 20071019, end: 20071020
  2. LOXONIN [Concomitant]
     Indication: INTERCOSTAL NEURALGIA
     Dosage: 180 MG/DAY
     Dates: start: 20071001
  3. MUCOSTA [Concomitant]
     Indication: INTERCOSTAL NEURALGIA
     Dosage: 300 MG/DAY
     Route: 048
     Dates: start: 20071001
  4. BLOPRESS [Concomitant]
     Dosage: 8 MG/DAY
     Route: 048
  5. CEROCRAL [Concomitant]
     Dosage: 40 MG/DAY
     Route: 048
  6. POLITOSE [Concomitant]
     Dosage: 3 DF/DAY
     Route: 048
  7. NEUROVITAN [Concomitant]
     Dosage: 3 DF/DAY
     Route: 048
  8. CYANOCOBALAMIN [Concomitant]
     Dosage: 1500 MG/DAY
     Route: 048
  9. AMOBAN [Concomitant]
     Dosage: 7.5 MG/DAY
     Route: 048
  10. FAMOTIDINE [Concomitant]
     Dosage: 20 MG/DAY
     Route: 048
  11. ADALAT [Concomitant]
     Dosage: 20 MG/DAY
     Route: 048
     Dates: end: 20071021
  12. TENORMIN [Concomitant]
     Dosage: 25 MG/DAY
     Route: 048
     Dates: end: 20071021

REACTIONS (22)
  - ABDOMINAL DISCOMFORT [None]
  - ALANINE AMINOTRANSFERASE INCREASED [None]
  - ASPARTATE AMINOTRANSFERASE INCREASED [None]
  - BLOOD LACTATE DEHYDROGENASE INCREASED [None]
  - BLOOD POTASSIUM INCREASED [None]
  - BRADYCARDIA [None]
  - CHEST DISCOMFORT [None]
  - DIZZINESS [None]
  - EOSINOPHIL PERCENTAGE INCREASED [None]
  - HAEMATOCRIT DECREASED [None]
  - HAEMOGLOBIN DECREASED [None]
  - HEADACHE [None]
  - HEPATIC FUNCTION ABNORMAL [None]
  - HEPATORENAL SYNDROME [None]
  - LYMPHOCYTE PERCENTAGE DECREASED [None]
  - MALAISE [None]
  - MULTI-ORGAN FAILURE [None]
  - NAUSEA [None]
  - NEUTROPHIL PERCENTAGE INCREASED [None]
  - RED BLOOD CELL COUNT DECREASED [None]
  - SICK SINUS SYNDROME [None]
  - WHITE BLOOD CELL COUNT INCREASED [None]
